FAERS Safety Report 17502409 (Version 2)
Quarter: 2020Q2

REPORT INFORMATION
  Report Type: Spontaneous
  Country: CH (occurrence: CH)
  Receive Date: 20200305
  Receipt Date: 20200507
  Transmission Date: 20200713
  Serious: Yes (Other)
  Sender: FDA-Public Use
  Company Number: CH-BRISTOL-MYERS SQUIBB COMPANY-BMS-2020-017687

PATIENT
  Age: 77 Year
  Sex: Male

DRUGS (1)
  1. OPDIVO [Suspect]
     Active Substance: NIVOLUMAB
     Indication: METASTASES TO LIVER
     Dosage: UNAVAILABLE
     Route: 065
     Dates: start: 20200110

REACTIONS (3)
  - Gait disturbance [Unknown]
  - Muscular weakness [Unknown]
  - Intentional product use issue [Unknown]
